FAERS Safety Report 4335838-2 (Version None)
Quarter: 2004Q2

REPORT INFORMATION
  Report Type: 
  Country: None (occurrence: None)
  Receive Date: 20040406
  Receipt Date: 20040325
  Transmission Date: 20050107
  Serious: Yes (Other)
  Sender: FDA-Public Use
  Company Number: 2004019985

PATIENT
  Sex: Male

DRUGS (2)
  1. ZYRTEC [Suspect]
     Indication: ILL-DEFINED DISORDER
  2. LORATADINE [Concomitant]

REACTIONS (3)
  - DRUG EFFECT DECREASED [None]
  - NERVOUSNESS [None]
  - THROAT TIGHTNESS [None]
